FAERS Safety Report 7769185-3 (Version None)
Quarter: 2011Q3

REPORT INFORMATION
  Report Type: 
  Country: None (occurrence: None)
  Receive Date: 20110922
  Receipt Date: 20110920
  Transmission Date: 20111222
  Serious: Yes (Other)
  Sender: FDA-Public Use
  Company Number: US-ROCHE-783541

PATIENT
  Sex: Female
  Weight: 52.2 kg

DRUGS (1)
  1. ACCUTANE [Suspect]
     Indication: ACNE
     Dosage: FREQUENCY: QD
     Route: 048
     Dates: start: 20010901, end: 20030401

REACTIONS (7)
  - DEPRESSION [None]
  - STRESS [None]
  - PROCTITIS ULCERATIVE [None]
  - INFLAMMATORY BOWEL DISEASE [None]
  - CROHN'S DISEASE [None]
  - IRRITABLE BOWEL SYNDROME [None]
  - HEADACHE [None]
